FAERS Safety Report 9878296 (Version 1)
Quarter: 2014Q1

REPORT INFORMATION
  Report Type: Spontaneous
  Country: US (occurrence: US)
  Receive Date: 20140206
  Receipt Date: 20140206
  Transmission Date: 20141002
  Serious: No
  Sender: FDA-Public Use
  Company Number: US-ALLERGAN-1310608US

PATIENT
  Sex: Female

DRUGS (1)
  1. BOTOX [Suspect]
     Indication: MIGRAINE
     Dosage: UNK, SINGLE
     Route: 030
     Dates: start: 20130625, end: 20130625

REACTIONS (9)
  - Dyskinesia [Unknown]
  - Dysphagia [Unknown]
  - Neck pain [Unknown]
  - Musculoskeletal stiffness [Unknown]
  - Injection site mass [Unknown]
  - Injection site pain [Unknown]
  - Injection site pain [Unknown]
  - Headache [Unknown]
  - Muscular weakness [Unknown]
